FAERS Safety Report 13030745 (Version 1)
Quarter: 2016Q4

REPORT INFORMATION
  Report Type: Spontaneous
  Country: US (occurrence: US)
  Receive Date: 20161215
  Receipt Date: 20161215
  Transmission Date: 20170207
  Serious: Yes (Other)
  Sender: FDA-Public Use
  Company Number: None

PATIENT
  Age: 39 Year
  Sex: Male
  Weight: 85.5 kg

DRUGS (4)
  1. OMEGA 3 [Concomitant]
     Active Substance: OMEGA-3 FATTY ACIDS
  2. VITAMIN D [Concomitant]
     Active Substance: CHOLECALCIFEROL
  3. MULTIVITAMIN [Concomitant]
     Active Substance: VITAMINS
  4. VYVANSE [Suspect]
     Active Substance: LISDEXAMFETAMINE DIMESYLATE
     Indication: ATTENTION DEFICIT/HYPERACTIVITY DISORDER
     Dosage: QUANTITY:1 CAPSULE(S); ORAL?
     Route: 048
     Dates: start: 20160820, end: 20161202

REACTIONS (1)
  - Gynaecomastia [None]

NARRATIVE: CASE EVENT DATE: 20161105
